FAERS Safety Report 11816220 (Version 2)
Quarter: 2019Q4

REPORT INFORMATION
  Report Type: Report from Study
  Country: NZ (occurrence: NZ)
  Receive Date: 20151209
  Receipt Date: 20191210
  Transmission Date: 20200122
  Serious: Yes (Death, Other)
  Sender: FDA-Public Use
  Company Number: NZ-GILEAD-2015-0181345

PATIENT
  Age: 60 Year
  Sex: Male

DRUGS (1)
  1. LEDIPASVIR/SOFOSBUVIR [Suspect]
     Active Substance: LEDIPASVIR\SOFOSBUVIR
     Indication: HEPATIC CIRRHOSIS
     Dosage: UNK
     Route: 048
     Dates: start: 20150910, end: 20151102

REACTIONS (5)
  - Ascites [Unknown]
  - Oesophageal varices haemorrhage [Unknown]
  - Portal hypertension [Unknown]
  - Hepatic cirrhosis [Unknown]
  - Death [Fatal]

NARRATIVE: CASE EVENT DATE: 20151103
